FAERS Safety Report 4841138-4 (Version None)
Quarter: 2005Q4

REPORT INFORMATION
  Report Type: 
  Country: None (occurrence: None)
  Receive Date: 20051130
  Receipt Date: 20051011
  Transmission Date: 20060501
  Serious: No
  Sender: FDA-Public Use
  Company Number: US-BRISTOL-MYERS SQUIBB COMPANY-13141247

PATIENT
  Sex: Male
  Weight: 145 kg

DRUGS (9)
  1. ABILIFY [Suspect]
     Indication: BIPOLAR DISORDER
     Route: 048
  2. ABILIFY [Suspect]
     Indication: HALLUCINATION, AUDITORY
     Route: 048
  3. LITHIUM [Concomitant]
  4. XANAX [Concomitant]
  5. LOPRESSOR [Concomitant]
  6. TRICOR [Concomitant]
  7. BACTRIM [Concomitant]
  8. LEVAQUIN [Concomitant]
  9. PHENAZOPYRIDINE HCL TAB [Concomitant]
     Indication: URINARY TRACT INFECTION

REACTIONS (1)
  - MUSCLE SPASMS [None]
